FAERS Safety Report 8239069-5 (Version None)
Quarter: 2012Q1

REPORT INFORMATION
  Report Type: 
  Country: None (occurrence: None)
  Receive Date: 20120327
  Receipt Date: 20120315
  Transmission Date: 20120608
  Serious: Yes (Hospitalization)
  Sender: FDA-Public Use
  Company Number: US-ASTRAZENECA-2012SE18247

PATIENT
  Age: 42 Year
  Sex: Male
  Weight: 114.3 kg

DRUGS (8)
  1. SEROQUEL [Suspect]
     Route: 048
     Dates: start: 20060101
  2. NEXIUM [Suspect]
     Indication: HYPERCHLORHYDRIA
     Route: 048
  3. ZETIA [Concomitant]
     Indication: BLOOD CHOLESTEROL
  4. RISPERDAL [Concomitant]
  5. NEXIUM [Suspect]
     Indication: GASTRITIS EROSIVE
     Route: 048
  6. LITHIUM CARBONATE [Concomitant]
  7. ULOROIC [Concomitant]
  8. TRICOR [Concomitant]

REACTIONS (15)
  - ARTERIAL THROMBOSIS LIMB [None]
  - MENTAL DISORDER [None]
  - AGGRESSION [None]
  - AGITATION [None]
  - PARANOIA [None]
  - ANGER [None]
  - MENTAL IMPAIRMENT [None]
  - SPEECH DISORDER [None]
  - GASTRITIS EROSIVE [None]
  - HYPERCHLORHYDRIA [None]
  - PNEUMONIA [None]
  - DISORIENTATION [None]
  - EMOTIONAL DISORDER [None]
  - ADVERSE EVENT [None]
  - INSOMNIA [None]
